FAERS Safety Report 11745471 (Version 1)
Quarter: 2015Q4

REPORT INFORMATION
  Report Type: Spontaneous
  Country: US (occurrence: None)
  Receive Date: 20151116
  Receipt Date: 20151116
  Transmission Date: 20160304
  Serious: Yes (Disabling, Other)
  Sender: FDA-Public Use
  Company Number: None

PATIENT
  Age: 73 Year
  Sex: Female
  Weight: 88.91 kg

DRUGS (11)
  1. CIPROFLOXACIN HCL 250 MG [Suspect]
     Active Substance: CIPROFLOXACIN
     Indication: URINARY TRACT INFECTION
     Route: 048
     Dates: start: 20150528, end: 20150531
  2. LOSARTAN. [Concomitant]
     Active Substance: LOSARTAN
  3. TYLENOL [Concomitant]
     Active Substance: ACETAMINOPHEN
  4. MECLIZINE [Concomitant]
     Active Substance: MECLIZINE\MECLIZINE HYDROCHLORIDE
  5. SYNTHROID [Concomitant]
     Active Substance: LEVOTHYROXINE SODIUM
  6. HYDRODIURIL [Concomitant]
     Active Substance: HYDROCHLOROTHIAZIDE
  7. LOW DOSE ASPIRIN [Concomitant]
     Active Substance: ASPIRIN
  8. ZOLOFT [Concomitant]
     Active Substance: SERTRALINE HYDROCHLORIDE
  9. PRILOSEC [Concomitant]
     Active Substance: OMEPRAZOLE MAGNESIUM
  10. IMODIUM [Concomitant]
     Active Substance: LOPERAMIDE HYDROCHLORIDE
  11. PROBIOTIC [Concomitant]
     Active Substance: PROBIOTICS NOS

REACTIONS (6)
  - Arthralgia [None]
  - Dizziness [None]
  - Nausea [None]
  - Listless [None]
  - Diarrhoea [None]
  - Pain [None]

NARRATIVE: CASE EVENT DATE: 20150529
